FAERS Safety Report 19099140 (Version 3)
Quarter: 2023Q2

REPORT INFORMATION
  Report Type: Report from Study
  Country: CA (occurrence: CA)
  Receive Date: 20210406
  Receipt Date: 20230502
  Transmission Date: 20230721
  Serious: Yes (Hospitalization)
  Sender: FDA-Public Use
  Company Number: CA-PFIZER INC-2021352932

PATIENT
  Age: 72 Year
  Sex: Female
  Weight: 75.8 kg

DRUGS (11)
  1. ATIVAN [Suspect]
     Active Substance: LORAZEPAM
     Indication: Prophylaxis
     Dosage: UNK
     Dates: start: 20190815, end: 20190815
  2. DILAUDID [Suspect]
     Active Substance: HYDROMORPHONE HYDROCHLORIDE
     Indication: Pain
     Dosage: UNK
     Dates: start: 20190815, end: 20190815
  3. ALENDRONATE [Concomitant]
     Active Substance: ALENDRONATE SODIUM
     Dosage: UNK
     Dates: start: 20020101
  4. NADOLOL [Concomitant]
     Active Substance: NADOLOL
     Indication: Prophylaxis
     Dosage: UNK
     Dates: start: 20130101
  5. XYLOCAINE [Concomitant]
     Active Substance: LIDOCAINE HYDROCHLORIDE
     Dosage: UNK
     Dates: start: 20190815, end: 20190815
  6. SYNTHROID [Concomitant]
     Active Substance: LEVOTHYROXINE SODIUM
     Dosage: UNK
     Dates: start: 20141001
  7. MULTI VITAMIN [ASCORBIC ACID;COLECALCIFEROL;NICOTINAMIDE;PANTHENOL;PYR [Concomitant]
     Indication: General physical condition
     Dosage: UNK
     Dates: start: 20020101
  8. PANTOPRAZOLE SODIUM [Concomitant]
     Active Substance: PANTOPRAZOLE SODIUM
     Dosage: UNK
     Dates: start: 2002, end: 20200223
  9. PREDNISONE [Concomitant]
     Active Substance: PREDNISONE
     Dosage: UNK
     Dates: start: 2002, end: 20200116
  10. CALCIUM [Concomitant]
     Active Substance: CALCIUM
     Dosage: 500 MG
     Dates: start: 2002
  11. ERGOCALCIFEROL [Concomitant]
     Active Substance: ERGOCALCIFEROL
     Dosage: UNK
     Dates: start: 2002

REACTIONS (1)
  - Presyncope [Recovered/Resolved]

NARRATIVE: CASE EVENT DATE: 20190815
